FAERS Safety Report 8773082 (Version 1)
Quarter: 2012Q4

REPORT INFORMATION
  Report Type: 
  Country: DE (occurrence: DE)
  Receive Date: 20120907
  Receipt Date: 20120907
  Transmission Date: 20130627
  Serious: Yes (Other)
  Sender: FDA-Public Use
  Company Number: GXKR2012DE002853

PATIENT
  Age: 52 Year
  Sex: Female

DRUGS (2)
  1. MINOCYCLIN HEXAL [Suspect]
     Indication: BORRELIA INFECTION
     Dosage: 50 mg, BID
     Route: 048
     Dates: start: 201208
  2. MINOCYCLIN HEXAL [Suspect]
     Dosage: 100 mg, BID
     Route: 048
     Dates: end: 201208

REACTIONS (3)
  - Convulsion [Not Recovered/Not Resolved]
  - Restlessness [Not Recovered/Not Resolved]
  - Anxiety [Not Recovered/Not Resolved]
